FAERS Safety Report 13857878 (Version 1)
Quarter: 2017Q3

REPORT INFORMATION
  Report Type: Other
  Country: GB (occurrence: GB)
  Receive Date: 20170811
  Receipt Date: 20170811
  Transmission Date: 20171127
  Serious: Yes (Other)
  Sender: FDA-Public Use
  Company Number: GB-ALKEM LABORATORIES LIMITED-GB-ALKEM-2016-00382

PATIENT
  Age: 19 Year
  Sex: Female

DRUGS (3)
  1. MYCOPHENOLATE MOFETIL. [Suspect]
     Active Substance: MYCOPHENOLATE MOFETIL
     Indication: LUPUS NEPHRITIS
     Dosage: 3 G, QD
     Dates: start: 2012
  2. MYCOPHENOLATE MOFETIL. [Suspect]
     Active Substance: MYCOPHENOLATE MOFETIL
     Dosage: UNKNOWN
     Dates: start: 2013, end: 2014
  3. RITUXIMAB. [Concomitant]
     Active Substance: RITUXIMAB
     Indication: LUPUS NEPHRITIS
     Dosage: 2 1G DOSES WITHIN A THREE WEEK INTERVAL
     Dates: start: 2014

REACTIONS (1)
  - Leukopenia [Unknown]

NARRATIVE: CASE EVENT DATE: 2014
